FAERS Safety Report 13720766 (Version 3)
Quarter: 2018Q2

REPORT INFORMATION
  Report Type: Report from Study
  Country: None (occurrence: US)
  Receive Date: 20170706
  Receipt Date: 20180406
  Transmission Date: 20180711
  Serious: Yes (Hospitalization, Other)
  Sender: FDA-Public Use
  Company Number: US-ABBVIE-17K-163-2028969-00

PATIENT
  Age: 60 Year
  Sex: Male

DRUGS (4)
  1. INDOMETHACIN. [Suspect]
     Active Substance: INDOMETHACIN
     Indication: OEDEMA PERIPHERAL
     Route: 065
  2. NADOLOL. [Concomitant]
     Active Substance: NADOLOL
     Indication: HYPERTENSION
  3. HUMIRA [Suspect]
     Active Substance: ADALIMUMAB
     Indication: PSORIASIS
     Route: 058
     Dates: start: 20160824, end: 201711
  4. HYDROXYZINE [Concomitant]
     Active Substance: HYDROXYZINE HYDROCHLORIDE
     Indication: PRURITUS

REACTIONS (20)
  - Nausea [Unknown]
  - Blood urea increased [Unknown]
  - Melaena [Unknown]
  - Brunner^s gland hyperplasia [Unknown]
  - Varices oesophageal [Unknown]
  - Joint swelling [Unknown]
  - Duodenal polyp [Unknown]
  - Haematochezia [Unknown]
  - Gastric ulcer [Unknown]
  - Psoriasis [Unknown]
  - Arthritis [Unknown]
  - Haematemesis [Unknown]
  - Intestinal sepsis [Unknown]
  - Portal hypertensive gastropathy [Unknown]
  - White blood cell count decreased [Unknown]
  - Portal hypertension [Unknown]
  - Frequent bowel movements [Unknown]
  - Arthralgia [Unknown]
  - Internal haemorrhage [Unknown]
  - Gastrointestinal tract adenoma [Unknown]

NARRATIVE: CASE EVENT DATE: 2017
